FAERS Safety Report 5482806-3 (Version None)
Quarter: 2007Q4

REPORT INFORMATION
  Report Type: 
  Country: None (occurrence: None)
  Receive Date: 20071011
  Receipt Date: 20070929
  Transmission Date: 20080405
  Serious: Yes (Other)
  Sender: FDA-Public Use
  Company Number: US-PFIZER INC-2006065298

PATIENT
  Sex: Male
  Weight: 90.7 kg

DRUGS (6)
  1. VIAGRA [Interacting]
     Indication: ERECTILE DYSFUNCTION
     Route: 048
  2. VIAGRA [Interacting]
     Route: 048
  3. VIAGRA [Interacting]
     Route: 048
  4. CAVERJECT [Suspect]
     Indication: ERECTILE DYSFUNCTION
  5. LUPRON [Interacting]
     Indication: PROSTATE EXAMINATION ABNORMAL
  6. GLUCOVANCE [Concomitant]
     Route: 048

REACTIONS (5)
  - DISCOMFORT [None]
  - DRUG INEFFECTIVE [None]
  - DRUG INTERACTION [None]
  - PROSTATE CANCER [None]
  - VEIN DISORDER [None]
